FAERS Safety Report 6820613-7 (Version None)
Quarter: 2010Q3

REPORT INFORMATION
  Report Type: 
  Country: None (occurrence: None)
  Receive Date: 20100707
  Receipt Date: 20100624
  Transmission Date: 20110219
  Serious: Yes (Hospitalization)
  Sender: FDA-Public Use
  Company Number: JP-AMGEN-QUU421589

PATIENT
  Age: 48 Year
  Sex: Female

DRUGS (3)
  1. ENBREL [Suspect]
     Indication: RHEUMATOID ARTHRITIS
     Route: 058
     Dates: start: 20070719, end: 20100427
  2. PARIET [Concomitant]
     Dosage: UNSPECIFIED
     Route: 048
  3. CELECOXIB [Concomitant]
     Dosage: UNSPECIFIED
     Route: 048

REACTIONS (1)
  - BREAST CANCER [None]
